FAERS Safety Report 7878165-9 (Version None)
Quarter: 2011Q4

REPORT INFORMATION
  Report Type: 
  Country: None (occurrence: None)
  Receive Date: 20111101
  Receipt Date: 20111024
  Transmission Date: 20120403
  Serious: No
  Sender: FDA-Public Use
  Company Number: US-BIOGENIDEC-2011BI040656

PATIENT
  Sex: Female

DRUGS (4)
  1. TYSABRI [Suspect]
     Indication: MULTIPLE SCLEROSIS
     Route: 042
     Dates: start: 20081024
  2. TYSABRI [Suspect]
     Route: 042
     Dates: start: 20070412, end: 20070604
  3. AVONEX [Concomitant]
     Indication: MULTIPLE SCLEROSIS
     Route: 030
     Dates: start: 20080601
  4. AVONEX [Concomitant]
     Route: 030
     Dates: start: 19970101, end: 20060701

REACTIONS (1)
  - NASOPHARYNGITIS [None]
